FAERS Safety Report 7777247-X (Version None)
Quarter: 2011Q3

REPORT INFORMATION
  Report Type: 
  Country: None (occurrence: None)
  Receive Date: 20110926
  Receipt Date: 20110915
  Transmission Date: 20111222
  Serious: Yes (Other)
  Sender: FDA-Public Use
  Company Number: PHFR2011IE05394

PATIENT
  Sex: Female

DRUGS (2)
  1. CLOZAPINE [Suspect]
     Indication: SCHIZOPHRENIA
     Route: 048
     Dates: start: 20040405
  2. CLOZAPINE [Suspect]
     Dosage: 250 MG, QD
     Route: 048

REACTIONS (6)
  - SEDATION [None]
  - URINARY TRACT INFECTION [None]
  - TACHYCARDIA [None]
  - HYPERTENSION [None]
  - ANTIPSYCHOTIC DRUG LEVEL INCREASED [None]
  - FATIGUE [None]
